FAERS Safety Report 4656165-X (Version None)
Quarter: 2005Q2

REPORT INFORMATION
  Report Type: 
  Country: None (occurrence: None)
  Receive Date: 20050509
  Receipt Date: 20050428
  Transmission Date: 20051028
  Serious: Yes (Other)
  Sender: FDA-Public Use
  Company Number: CA-ROCHE-403386

PATIENT
  Age: 14 Year
  Sex: Female

DRUGS (3)
  1. ACCUTANE [Suspect]
     Indication: ACNE
     Route: 048
     Dates: start: 20040915, end: 20041115
  2. ACCUTANE [Suspect]
     Route: 048
     Dates: start: 20050115, end: 20050131
  3. BIRTH CONTROL PILL [Concomitant]
     Indication: CONTRACEPTION
     Route: 048

REACTIONS (2)
  - CERVIX DISORDER [None]
  - PRECANCEROUS CELLS PRESENT [None]
